FAERS Safety Report 4684392-4 (Version None)
Quarter: 2005Q2

REPORT INFORMATION
  Report Type: 
  Country: None (occurrence: None)
  Receive Date: 20050531
  Receipt Date: 20041001
  Transmission Date: 20051028
  Serious: Yes (Hospitalization)
  Sender: FDA-Public Use
  Company Number: USA041079921

PATIENT
  Sex: Male

DRUGS (3)
  1. ZYPREXA [Suspect]
     Indication: DEPRESSION
     Dosage: 20 MG/4 DAY
  2. LEXAPRO [Concomitant]
  3. TRANXENE [Concomitant]

REACTIONS (2)
  - PRESCRIBED OVERDOSE [None]
  - SUICIDE ATTEMPT [None]
